FAERS Safety Report 8564458-9 (Version None)
Quarter: 2012Q3

REPORT INFORMATION
  Report Type: 
  Country: None (occurrence: None)
  Receive Date: 20120803
  Receipt Date: 20120726
  Transmission Date: 20120928
  Serious: Yes (Hospitalization)
  Sender: FDA-Public Use
  Company Number: GB-NOVOPROD-348034

PATIENT
  Age: 55 Year
  Sex: Female
  Weight: 92.7 kg

DRUGS (1)
  1. VICTOZA [Suspect]
     Indication: OBESITY
     Dosage: 0.6 MG, QD
     Route: 058
     Dates: start: 20110908

REACTIONS (1)
  - PARATHYROID TUMOUR BENIGN [None]
